FAERS Safety Report 25260390 (Version 1)
Quarter: 2025Q2

REPORT INFORMATION
  Report Type: Spontaneous
  Country: AU (occurrence: AU)
  Receive Date: 20250501
  Receipt Date: 20250501
  Transmission Date: 20250717
  Serious: Yes (Other)
  Sender: ORGANON
  Company Number: None

PATIENT
  Age: 22 Year
  Sex: Female

DRUGS (5)
  1. MOMETASONE FUROATE [Suspect]
     Active Substance: MOMETASONE FUROATE
  2. BETAMETHASONE [Suspect]
     Active Substance: BETAMETHASONE
  3. METHYLPREDNISOLONE ACEPONATE [Suspect]
     Active Substance: METHYLPREDNISOLONE ACEPONATE
     Indication: Eczema
  4. HYDROCORTISONE [Suspect]
     Active Substance: HYDROCORTISONE
  5. PREDNISONE [Suspect]
     Active Substance: PREDNISONE

REACTIONS (4)
  - Eczema [Not Recovered/Not Resolved]
  - Erythema [Not Recovered/Not Resolved]
  - Skin burning sensation [Not Recovered/Not Resolved]
  - Skin exfoliation [Not Recovered/Not Resolved]

NARRATIVE: CASE EVENT DATE: 20210808
